FAERS Safety Report 15369010 (Version 1)
Quarter: 2018Q3

REPORT INFORMATION
  Report Type: Spontaneous
  Country: FR (occurrence: FR)
  Receive Date: 20180911
  Receipt Date: 20180911
  Transmission Date: 20181010
  Serious: Yes (Hospitalization)
  Sender: FDA-Public Use
  Company Number: FR-TEVA-2018-FR-953222

PATIENT
  Age: 56 Year
  Sex: Male
  Weight: 77 kg

DRUGS (16)
  1. VANCOMYCINE [Suspect]
     Active Substance: VANCOMYCIN
     Indication: POST PROCEDURAL INFECTION
     Dosage: 3500 MILLIGRAM DAILY;
     Route: 041
     Dates: start: 20180325, end: 20180408
  2. CEFOTAXIME BASE [Concomitant]
     Active Substance: CEFOTAXIME SODIUM
     Indication: POST PROCEDURAL INFECTION
     Dosage: 12 GRAM DAILY;
     Route: 048
     Dates: start: 20180325, end: 20180408
  3. LOXEN 20 MG, COMPRIM? S?CABLE [Concomitant]
     Dosage: 20 MILLIGRAM DAILY;
     Route: 048
  4. TRAMADOL PARACETAMOL ABBOTT 37,5 MG/325 MG, COMPRIM? PELLICUL? [Concomitant]
     Dosage: 3 DOSAGE FORMS DAILY;
     Route: 048
  5. MECIR L.P. 0,4 MG, COMPRIM? PELLICUL? ? LIB?RATION PROLONG?E [Concomitant]
     Active Substance: TAMSULOSIN HYDROCHLORIDE
     Dosage: .4 MILLIGRAM DAILY;
     Route: 048
  6. SYNACTHENE 0,25 MG/1 ML, SOLUTION INJECTABLE [Concomitant]
     Dosage: 1 DOSAGE FORMS DAILY;
     Route: 042
  7. ECONAZOLE [Concomitant]
     Active Substance: ECONAZOLE
     Dosage: 2 DOSAGE FORMS DAILY;
     Route: 003
  8. EDUCTYL [Concomitant]
     Active Substance: POTASSIUM BITARTRATE\SODIUM BICARBONATE
     Route: 054
  9. ACTISKENAN [Concomitant]
     Active Substance: MORPHINE SULFATE
     Route: 048
  10. KARDEGIC [Concomitant]
     Active Substance: ASPIRIN DL-LYSINE
     Dosage: 75 MILLIGRAM DAILY;
     Route: 048
  11. DIFFU K, G?LULE [Concomitant]
     Active Substance: POTASSIUM CHLORIDE
     Dosage: 600 MILLIGRAM DAILY;
     Route: 048
  12. SOLUPRED 5 MG, COMPRIM? EFFERVESCENT [Concomitant]
     Dosage: 10 MILLIGRAM DAILY;
     Route: 048
  13. MACROGOL 4000 MYLAN [Concomitant]
     Active Substance: POLYETHYLENE GLYCOL 4000
     Dosage: 2 DOSAGE FORMS DAILY;
     Route: 048
  14. FLAGYL [Concomitant]
     Active Substance: METRONIDAZOLE\METRONIDAZOLE HYDROCHLORIDE
     Dosage: 1500 MILLIGRAM DAILY;
     Route: 048
     Dates: start: 20180325, end: 20180408
  15. OFLOXACINE [Concomitant]
     Active Substance: OFLOXACIN
     Dosage: 600 MILLIGRAM DAILY;
     Route: 048
     Dates: start: 20180325, end: 20180408
  16. ARIXTRA 2,5 MG/0,5 ML, SOLUTION INJECTABLE EN SERINGUE PR??REMPLIE [Concomitant]
     Dosage: 1 DOSAGE FORMS DAILY;
     Route: 051

REACTIONS (1)
  - Acute kidney injury [Recovered/Resolved]

NARRATIVE: CASE EVENT DATE: 20180406
